FAERS Safety Report 7190465-7 (Version None)
Quarter: 2010Q4

REPORT INFORMATION
  Report Type: 
  Country: None (occurrence: None)
  Receive Date: 20101223
  Receipt Date: 20101214
  Transmission Date: 20110411
  Serious: Yes (Other)
  Sender: FDA-Public Use
  Company Number: IT-JNJFOC-20101206619

PATIENT
  Age: 38 Year
  Sex: Male

DRUGS (2)
  1. INFLIXIMAB, RECOMBINANT [Suspect]
     Indication: PSORIASIS
     Dosage: DOSING STARTED AT WEEK 0
     Route: 042
  2. INFLIXIMAB, RECOMBINANT [Suspect]
     Dosage: 2ND DOSE AT WEEK 2
     Route: 042

REACTIONS (1)
  - PNEUMONIA LEGIONELLA [None]
